FAERS Safety Report 15698052 (Version 1)
Quarter: 2018Q4

REPORT INFORMATION
  Report Type: Spontaneous
  Country: US (occurrence: US)
  Receive Date: 20181207
  Receipt Date: 20181207
  Transmission Date: 20190205
  Serious: No
  Sender: FDA-Public Use
  Company Number: US-PFIZER INC-2018007178

PATIENT
  Age: 2 Year
  Sex: Female
  Weight: 13.61 kg

DRUGS (2)
  1. GENOTROPIN [Suspect]
     Active Substance: SOMATROPIN
     Indication: PRADER-WILLI SYNDROME
     Dosage: ALTERNATE 0.2MG AND 0.3MG, 7 DAYS A WEEK
     Dates: start: 20171212
  2. GENOTROPIN [Suspect]
     Active Substance: SOMATROPIN
     Dosage: 0.2 MG, 1X/DAY (0.2MG ONCEA DAY BY INJECTION)
     Dates: start: 20171221

REACTIONS (3)
  - Product dose omission [Not Recovered/Not Resolved]
  - Insulin-like growth factor increased [Unknown]
  - Bone density increased [Unknown]

NARRATIVE: CASE EVENT DATE: 20180106
